FAERS Safety Report 5625639-7 (Version None)
Quarter: 2008Q1

REPORT INFORMATION
  Report Type: 
  Country: None (occurrence: None)
  Receive Date: 20080207
  Receipt Date: 20080207
  Transmission Date: 20080703
  Serious: No
  Sender: FDA-Public Use
  Company Number: None

PATIENT
  Age: 54 Year
  Sex: Male
  Weight: 101.1521 kg

DRUGS (1)
  1. VIAGRA [Suspect]

REACTIONS (5)
  - BALANCE DISORDER [None]
  - DEAFNESS NEUROSENSORY [None]
  - DEAFNESS UNILATERAL [None]
  - ILL-DEFINED DISORDER [None]
  - TINNITUS [None]
